FAERS Safety Report 15984652 (Version 4)
Quarter: 2019Q3

REPORT INFORMATION
  Report Type: Spontaneous
  Country: US (occurrence: US)
  Receive Date: 20190220
  Receipt Date: 20190821
  Transmission Date: 20191004
  Serious: Yes (Other)
  Sender: FDA-Public Use
  Company Number: US-ASTRAZENECA-2018SF21894

PATIENT
  Age: 659 Month
  Sex: Male
  Weight: 164.7 kg

DRUGS (22)
  1. ATENOLOL. [Concomitant]
     Active Substance: ATENOLOL
  2. EPIPEN [Concomitant]
     Active Substance: EPINEPHRINE
  3. NEXIUM [Suspect]
     Active Substance: ESOMEPRAZOLE MAGNESIUM
     Indication: GASTROOESOPHAGEAL REFLUX DISEASE
     Route: 048
     Dates: start: 20010220, end: 20040101
  4. NEXIUM [Suspect]
     Active Substance: ESOMEPRAZOLE MAGNESIUM
     Indication: GASTROOESOPHAGEAL REFLUX DISEASE
     Route: 048
     Dates: start: 200103, end: 200401
  5. VITAMIN B [Concomitant]
     Active Substance: VITAMIN B
  6. LEVEMIR [Concomitant]
     Active Substance: INSULIN DETEMIR
  7. COZAAR [Concomitant]
     Active Substance: LOSARTAN POTASSIUM
  8. CYMBALTA [Concomitant]
     Active Substance: DULOXETINE HYDROCHLORIDE
  9. ALBUTEROL. [Concomitant]
     Active Substance: ALBUTEROL
  10. PRILOSEC [Suspect]
     Active Substance: OMEPRAZOLE MAGNESIUM
     Indication: GASTROOESOPHAGEAL REFLUX DISEASE
     Route: 048
  11. TRAMADOL. [Concomitant]
     Active Substance: TRAMADOL
  12. COZAAR [Concomitant]
     Active Substance: LOSARTAN POTASSIUM
  13. ANTIVERT [Concomitant]
     Active Substance: MECLIZINE HYDROCHLORIDE
  14. NOVOLOG [Concomitant]
     Active Substance: INSULIN ASPART
  15. NAPROSYN [Concomitant]
     Active Substance: NAPROXEN
  16. SIMVASTATIN. [Concomitant]
     Active Substance: SIMVASTATIN
  17. CARVEDILOL. [Concomitant]
     Active Substance: CARVEDILOL
  18. ASPIRIN. [Concomitant]
     Active Substance: ASPIRIN
  19. FENOFIBRATE. [Concomitant]
     Active Substance: FENOFIBRATE
  20. TAMSULOSIN [Concomitant]
     Active Substance: TAMSULOSIN
  21. NEXIUM [Suspect]
     Active Substance: ESOMEPRAZOLE MAGNESIUM
     Indication: GASTROOESOPHAGEAL REFLUX DISEASE
     Route: 048
  22. PRILOSEC [Suspect]
     Active Substance: OMEPRAZOLE MAGNESIUM
     Indication: GASTROOESOPHAGEAL REFLUX DISEASE
     Route: 048
     Dates: start: 20040101, end: 20160101

REACTIONS (4)
  - Chronic kidney disease [Not Recovered/Not Resolved]
  - Renal failure [Not Recovered/Not Resolved]
  - Renal injury [Unknown]
  - Acute kidney injury [Unknown]

NARRATIVE: CASE EVENT DATE: 201409
